FAERS Safety Report 4672866-1 (Version None)
Quarter: 2005Q2

REPORT INFORMATION
  Report Type: 
  Country: None (occurrence: None)
  Receive Date: 20050524
  Receipt Date: 20050322
  Transmission Date: 20051028
  Serious: Yes (Other)
  Sender: FDA-Public Use
  Company Number: PHEH2005US03448

PATIENT
  Age: 52 Year
  Sex: Female

DRUGS (2)
  1. ZELNORM [Suspect]
     Indication: IRRITABLE BOWEL SYNDROME
     Dosage: 6 MG, ONCE/SINGLE
     Route: 048
     Dates: start: 20050321, end: 20050321
  2. LIPITOR [Concomitant]

REACTIONS (6)
  - COLD SWEAT [None]
  - DIARRHOEA [None]
  - DIZZINESS POSTURAL [None]
  - FEELING ABNORMAL [None]
  - TINNITUS [None]
  - VOMITING [None]
